FAERS Safety Report 5253611-8 (Version None)
Quarter: 2007Q1

REPORT INFORMATION
  Report Type: 
  Country: None (occurrence: None)
  Receive Date: 20070301
  Receipt Date: 20070220
  Transmission Date: 20070707
  Serious: Yes (Hospitalization, Disabling)
  Sender: FDA-Public Use
  Company Number: JP-PFIZER INC-2007013095

PATIENT
  Sex: Female
  Weight: 37 kg

DRUGS (8)
  1. ALDACTONE [Suspect]
     Indication: POLYURIA
     Dosage: DAILY DOSE:50MG
     Route: 048
     Dates: start: 20070104, end: 20070123
  2. SUNRYTHM [Suspect]
     Indication: ATRIAL FIBRILLATION
     Dosage: DAILY DOSE:150MG
     Route: 048
     Dates: start: 20070104, end: 20070123
  3. LANIRAPID [Suspect]
     Indication: CARDIAC FAILURE CHRONIC
     Dosage: DAILY DOSE:.1MG
     Route: 048
     Dates: start: 20070104, end: 20070123
  4. ASPIRIN [Concomitant]
  5. NITROGLYCERIN [Concomitant]
  6. DIART [Concomitant]
  7. ALLOPURINOL SODIUM [Concomitant]
  8. MAGNESIUM OXIDE [Concomitant]

REACTIONS (5)
  - ATRIAL FIBRILLATION [None]
  - CARDIAC ARREST [None]
  - HYPERKALAEMIA [None]
  - LIVER DISORDER [None]
  - RENAL DISORDER [None]
